FAERS Safety Report 25518395 (Version 1)
Quarter: 2025Q3

REPORT INFORMATION
  Report Type: Spontaneous
  Country: GB (occurrence: GB)
  Receive Date: 20250704
  Receipt Date: 20250704
  Transmission Date: 20251021
  Serious: Yes (Death)
  Sender: STEMLINE THERAPEUTICS
  Company Number: GB-STEMLINE THERAPEUTICS, INC-2025-STML-GB002279

PATIENT

DRUGS (1)
  1. ELACESTRANT [Suspect]
     Active Substance: ELACESTRANT
     Indication: Breast cancer metastatic
     Route: 065

REACTIONS (2)
  - Sudden death [Fatal]
  - Joint swelling [Unknown]
